FAERS Safety Report 5724428-2 (Version None)
Quarter: 2008Q2

REPORT INFORMATION
  Report Type: 
  Country: None (occurrence: None)
  Receive Date: 20080430
  Receipt Date: 20080423
  Transmission Date: 20081010
  Serious: Yes (Disabling)
  Sender: FDA-Public Use
  Company Number: FR-PFIZER INC-2008036355

PATIENT
  Age: 77 Year
  Sex: Female

DRUGS (2)
  1. CAMPTO [Suspect]
     Indication: COLON CANCER
     Route: 042
     Dates: start: 20071015, end: 20071215
  2. CETUXIMAB [Suspect]
     Indication: COLON CANCER
     Route: 042
     Dates: start: 20071015, end: 20071215

REACTIONS (1)
  - ECZEMA [None]
